FAERS Safety Report 6753355-7 (Version None)
Quarter: 2010Q2

REPORT INFORMATION
  Report Type: 
  Country: None (occurrence: None)
  Receive Date: 20100520
  Receipt Date: 20091123
  Transmission Date: 20101027
  Serious: Yes (Disabling, Other)
  Sender: FDA-Public Use
  Company Number: 2009207360

PATIENT
  Age: 60 Year
  Sex: Female
  Weight: 76 kg

DRUGS (9)
  1. PROVERA [Suspect]
     Indication: HORMONE REPLACEMENT THERAPY
     Dosage: 10 MG, UNK, ORAL
     Route: 048
     Dates: start: 19800101, end: 19920101
  2. PREMARIN [Suspect]
     Indication: HORMONE REPLACEMENT THERAPY
     Dosage: 0.125 MG, UNK
     Route: 048
     Dates: start: 19800101, end: 19820101
  3. PREMPRO [Suspect]
     Indication: HORMONE REPLACEMENT THERAPY
     Route: 048
     Dates: start: 19960701, end: 19971101
  4. SYNTHROID [Concomitant]
  5. CORGARD (NADOLOL) ONGOING [Concomitant]
  6. CALAN [Concomitant]
  7. TRICOR (FENOFIBRATE) ONGOING [Concomitant]
  8. CRESTOR (ROSUVASTATIN) ONGOING [Concomitant]
  9. WELLBUTRIN [Concomitant]

REACTIONS (2)
  - BREAST CANCER FEMALE [None]
  - OVARIAN CANCER [None]
